FAERS Safety Report 19497786 (Version 4)
Quarter: 2022Q3

REPORT INFORMATION
  Report Type: Spontaneous
  Country: GB (occurrence: GB)
  Receive Date: 20210706
  Receipt Date: 20220704
  Transmission Date: 20221027
  Serious: Yes (Death, Life-Threatening, Hospitalization, Disabling, Other)
  Sender: FDA-Public Use
  Company Number: None

PATIENT
  Age: 27 Year
  Sex: Female

DRUGS (2)
  1. TACROLIMUS [Interacting]
     Active Substance: TACROLIMUS
     Indication: Kidney transplant rejection
  2. OMEPRAZOLE [Interacting]
     Active Substance: OMEPRAZOLE
     Indication: Renal failure

REACTIONS (8)
  - Off label use [Unknown]
  - Drug interaction [Unknown]
  - Acidosis [Unknown]
  - Brain oedema [Fatal]
  - Circulatory collapse [Unknown]
  - Blood calcium decreased [Unknown]
  - Renal impairment [Unknown]
  - Blood magnesium decreased [Unknown]

NARRATIVE: CASE EVENT DATE: 20161001
